FAERS Safety Report 23311150 (Version 5)
Quarter: 2024Q1

REPORT INFORMATION
  Report Type: Spontaneous
  Country: US (occurrence: US)
  Receive Date: 20231218
  Receipt Date: 20240207
  Transmission Date: 20240409
  Serious: Yes (Other)
  Sender: FDA-Public Use
  Company Number: US-ABBVIE-5541391

PATIENT
  Sex: Female
  Weight: 57 kg

DRUGS (3)
  1. LILETTA [Suspect]
     Active Substance: LEVONORGESTREL
     Indication: Contraception
     Dosage: TIME INTERVAL: AS NECESSARY: FREQUENCY- EVERY 7 YEARS, FORM STRENGTH: 52 MG
     Route: 015
     Dates: start: 20231113, end: 20231211
  2. ADDERALL [Concomitant]
     Active Substance: AMPHETAMINE ASPARTATE\AMPHETAMINE SULFATE\DEXTROAMPHETAMINE SACCHARATE\DEXTROAMPHETAMINE SULFATE
     Indication: Attention deficit hyperactivity disorder
     Dosage: TAKE 1 TABLET BY MOUTH DAILY WITH BREAKFAST
     Route: 048
     Dates: start: 20231205
  3. ADDERALL [Concomitant]
     Active Substance: AMPHETAMINE ASPARTATE\AMPHETAMINE SULFATE\DEXTROAMPHETAMINE SACCHARATE\DEXTROAMPHETAMINE SULFATE
     Indication: Attention deficit hyperactivity disorder
     Dosage: TAKE 1 TABLET BY MOUTH DAILY WITH LUNCH
     Route: 048
     Dates: start: 20231205

REACTIONS (4)
  - Uterine haemorrhage [Recovered/Resolved]
  - Device expulsion [Recovered/Resolved]
  - Uterine spasm [Recovered/Resolved]
  - Pain [Recovered/Resolved]

NARRATIVE: CASE EVENT DATE: 20230101
